FAERS Safety Report 13485776 (Version 2)
Quarter: 2017Q2

REPORT INFORMATION
  Report Type: Spontaneous
  Country: US (occurrence: US)
  Receive Date: 20170426
  Receipt Date: 20170614
  Transmission Date: 20170830
  Serious: Yes (Hospitalization)
  Sender: FDA-Public Use
  Company Number: US-WEST-WARD PHARMACEUTICALS CORP.-US-H14001-17-01179

PATIENT
  Age: 29 Year
  Sex: Male

DRUGS (2)
  1. VAZCULEP [Suspect]
     Active Substance: PHENYLEPHRINE HYDROCHLORIDE
     Indication: PAINFUL ERECTION
     Route: 017
     Dates: start: 20150619
  2. PSEUDOEPHEDRINE HYDROCHLORIDE. [Suspect]
     Active Substance: PSEUDOEPHEDRINE HYDROCHLORIDE
     Indication: PAINFUL ERECTION
     Route: 065

REACTIONS (5)
  - Cardiogenic shock [Recovered/Resolved]
  - Acute pulmonary oedema [Recovered/Resolved]
  - Acute myocardial infarction [Recovered/Resolved]
  - Off label use [Recovered/Resolved]
  - Hypertensive emergency [Recovered/Resolved]

NARRATIVE: CASE EVENT DATE: 20150619
